FAERS Safety Report 19234916 (Version 1)
Quarter: 2021Q2

REPORT INFORMATION
  Report Type: Spontaneous
  Country: US (occurrence: US)
  Receive Date: 20210509
  Receipt Date: 20210509
  Transmission Date: 20210717
  Serious: No
  Sender: FDA-Public Use
  Company Number: US-ASTRAZENECA-2021A324486

PATIENT
  Age: 21749 Day
  Sex: Male
  Weight: 93 kg

DRUGS (1)
  1. BYDUREON BCISE [Suspect]
     Active Substance: EXENATIDE
     Indication: DIABETES MELLITUS
     Route: 058
     Dates: start: 2019

REACTIONS (5)
  - Device leakage [Unknown]
  - Weight decreased [Unknown]
  - Drug delivery system malfunction [Unknown]
  - Drug dose omission by device [Recovered/Resolved]
  - Intentional device misuse [Unknown]

NARRATIVE: CASE EVENT DATE: 20210404
